FAERS Safety Report 24914375 (Version 2)
Quarter: 2025Q1

REPORT INFORMATION
  Report Type: Spontaneous
  Country: AR (occurrence: AR)
  Receive Date: 20250203
  Receipt Date: 20250319
  Transmission Date: 20250408
  Serious: Yes (Other)
  Sender: AMGEN
  Company Number: AR-PFIZER INC-PV202300080626

PATIENT
  Age: 87 Year
  Sex: Female

DRUGS (1)
  1. ENBREL [Suspect]
     Active Substance: ETANERCEPT
     Indication: Rheumatoid arthritis
     Dosage: 50 MG, WEEKLY
     Route: 065
     Dates: start: 20180416

REACTIONS (4)
  - Blindness [Not Recovered/Not Resolved]
  - Maculopathy [Unknown]
  - Visual impairment [Not Recovered/Not Resolved]
  - Eye swelling [Not Recovered/Not Resolved]
